FAERS Safety Report 10163175 (Version 2)
Quarter: 2014Q2

REPORT INFORMATION
  Report Type: Spontaneous
  Country: FR (occurrence: FR)
  Receive Date: 20140509
  Receipt Date: 20140605
  Transmission Date: 20141212
  Serious: Yes (Hospitalization)
  Sender: FDA-Public Use
  Company Number: FR-GLAXOSMITHKLINE-B0990549A

PATIENT
  Age: 64 Year
  Sex: Female

DRUGS (10)
  1. ZELITREX [Suspect]
     Indication: PRODUCT USED FOR UNKNOWN INDICATION
     Dosage: 500MG TWICE PER DAY
     Route: 048
     Dates: start: 20140403, end: 20140415
  2. VELCADE [Suspect]
     Indication: PLASMA CELL MYELOMA
     Dosage: 1INJ CYCLIC
     Route: 042
     Dates: start: 20140404, end: 20140411
  3. THALIDOMIDE [Suspect]
     Indication: PLASMA CELL MYELOMA
     Dosage: 50MG PER DAY
     Route: 048
     Dates: start: 20140404, end: 20140416
  4. DEXAMETHASON [Suspect]
     Indication: PLASMA CELL MYELOMA
     Dosage: 40MG PER DAY
     Route: 048
     Dates: start: 20140412, end: 20140415
  5. AMLODIPINE [Suspect]
     Indication: PRODUCT USED FOR UNKNOWN INDICATION
     Dosage: 5MG TWICE PER DAY
     Route: 065
     Dates: start: 20140322, end: 20140417
  6. LOVENOX [Suspect]
     Indication: PRODUCT USED FOR UNKNOWN INDICATION
     Route: 058
     Dates: start: 20140415, end: 20140416
  7. ORAP [Concomitant]
     Indication: DEPRESSION
  8. NOZINAN [Concomitant]
     Indication: DEPRESSION
  9. TRANXENE [Concomitant]
     Indication: DEPRESSION
  10. DOLIPRANE [Concomitant]
     Dates: start: 20140322

REACTIONS (5)
  - Acute generalised exanthematous pustulosis [Recovered/Resolved]
  - Urticaria [Recovered/Resolved]
  - Rash pustular [Recovered/Resolved]
  - Hypersensitivity vasculitis [Recovered/Resolved]
  - Purpura [Recovered/Resolved]
